FAERS Safety Report 4660843-6 (Version None)
Quarter: 2005Q2

REPORT INFORMATION
  Report Type: 
  Country: None (occurrence: None)
  Receive Date: 20050422
  Receipt Date: 20040224
  Transmission Date: 20051028
  Serious: No
  Sender: FDA-Public Use
  Company Number: APP200400206

PATIENT
  Age: 82 Year
  Sex: Female
  Weight: 65.318 kg

DRUGS (2)
  1. HEPARIN SODIUM INJECTION [Suspect]
     Indication: ANTICOAGULANT THERAPY
     Dosage: 20 ML (20 ML,ONCE), INJECTION
     Route: 042
     Dates: start: 20040126, end: 20040126
  2. HEPARIN SODIUM INJECTION [Suspect]
     Indication: CATHETERISATION CARDIAC
     Dosage: 20 ML (20 ML,ONCE), INJECTION
     Route: 042
     Dates: start: 20040126, end: 20040126

REACTIONS (1)
  - BLEEDING TIME PROLONGED [None]
